FAERS Safety Report 5574737-5 (Version None)
Quarter: 2007Q4

REPORT INFORMATION
  Report Type: 
  Country: None (occurrence: None)
  Receive Date: 20071226
  Receipt Date: 20071226
  Transmission Date: 20080405
  Serious: No
  Sender: FDA-Public Use
  Company Number: None

PATIENT
  Age: 61 Year
  Sex: Male
  Weight: 81.6475 kg

DRUGS (1)
  1. PERSANTINE [Suspect]
     Indication: CATHETERISATION CARDIAC
     Dosage: 42.8MG OVER 4 MINUTES IV
     Route: 042
     Dates: start: 20071221

REACTIONS (2)
  - CHILLS [None]
  - TREMOR [None]
